FAERS Safety Report 8816262 (Version 2)
Quarter: 2012Q4

REPORT INFORMATION
  Report Type: 
  Country: US (occurrence: US)
  Receive Date: 20120929
  Receipt Date: 20121130
  Transmission Date: 20130627
  Serious: Yes (Hospitalization)
  Sender: FDA-Public Use
  Company Number: PHEH2012US016750

PATIENT
  Sex: Male

DRUGS (1)
  1. EXELON PATCH [Suspect]
     Dosage: 4.6 mg, QD
     Route: 062

REACTIONS (2)
  - Pneumonia [Unknown]
  - Memory impairment [Unknown]
